FAERS Safety Report 24540409 (Version 1)
Quarter: 2024Q4

REPORT INFORMATION
  Report Type: Spontaneous
  Country: US (occurrence: None)
  Receive Date: 20241022
  Receipt Date: 20241022
  Transmission Date: 20250115
  Serious: Yes (Other)
  Sender: Public
  Company Number: None

PATIENT
  Age: 83 Year
  Sex: Female
  Weight: 92.7 kg

DRUGS (1)
  1. REMDESIVIR [Suspect]
     Active Substance: REMDESIVIR

REACTIONS (4)
  - Hypertension [None]
  - Tachycardia [None]
  - Hypotension [None]
  - Atrioventricular block first degree [None]

NARRATIVE: CASE EVENT DATE: 20241021
